FAERS Safety Report 5050957-3 (Version None)
Quarter: 2006Q3

REPORT INFORMATION
  Report Type: 
  Country: None (occurrence: None)
  Receive Date: 20060710
  Receipt Date: 20060626
  Transmission Date: 20061208
  Serious: Yes (Other)
  Sender: FDA-Public Use
  Company Number: 2006SS000058

PATIENT
  Age: 30 Year
  Sex: Female

DRUGS (1)
  1. MYOBLOC [Suspect]
     Indication: TORTICOLLIS
     Dosage: 30000 U; IM
     Route: 030
     Dates: start: 20060217, end: 20060217

REACTIONS (2)
  - ANOREXIA NERVOSA [None]
  - BLOOD CREATINE PHOSPHOKINASE INCREASED [None]
